FAERS Safety Report 12484763 (Version 2)
Quarter: 2016Q3

REPORT INFORMATION
  Report Type: Spontaneous
  Country: CA (occurrence: CA)
  Receive Date: 20160621
  Receipt Date: 20160812
  Transmission Date: 20161109
  Serious: Yes (Hospitalization, Other)
  Sender: FDA-Public Use
  Company Number: CA-HQ SPECIALTY-CA-2016INT000390

PATIENT
  Age: 52 Year
  Sex: Female

DRUGS (9)
  1. XELJANZ [Suspect]
     Active Substance: TOFACITINIB CITRATE
     Indication: RHEUMATOID ARTHRITIS
     Dosage: 10 MG (5 MG,2 IN 1 D)
     Route: 048
     Dates: start: 20150821, end: 20151104
  2. XELJANZ [Suspect]
     Active Substance: TOFACITINIB CITRATE
     Dosage: 10 MG (5 MG,2 IN 1 D)
     Route: 048
     Dates: start: 20151109, end: 20160315
  3. ATASOL [Suspect]
     Active Substance: ACETAMINOPHEN
     Indication: PAIN
     Dosage: AS NECESSARY
     Route: 065
  4. ATASOL [Suspect]
     Active Substance: ACETAMINOPHEN
     Dosage: RESUMED (AS NECESSARY)
     Route: 065
  5. METHOTREXATE SODIUM. [Suspect]
     Active Substance: METHOTREXATE SODIUM
     Dosage: 2.1429 MG (15 MG,1 IN 1 W)
     Route: 048
     Dates: start: 2016
  6. NAPROSYN [Suspect]
     Active Substance: NAPROXEN
     Indication: PAIN
     Dosage: UNK
     Route: 065
  7. METHOTREXATE SODIUM. [Suspect]
     Active Substance: METHOTREXATE SODIUM
     Indication: RHEUMATOID ARTHRITIS
     Dosage: 2.1429 MG (15 MG,1 IN 1 W)
     Route: 048
     Dates: end: 20160308
  8. NAPROSYN [Suspect]
     Active Substance: NAPROXEN
     Dosage: 2 IN 1 D
     Route: 065
  9. XELJANZ [Suspect]
     Active Substance: TOFACITINIB CITRATE
     Dosage: 10 MG (5 MG,2 IN 1 D)
     Route: 048
     Dates: start: 2016

REACTIONS (18)
  - Eye pain [Recovered/Resolved]
  - Diarrhoea [Not Recovered/Not Resolved]
  - Pollakiuria [Not Recovered/Not Resolved]
  - Urine abnormality [Not Recovered/Not Resolved]
  - Rheumatoid arthritis [Recovering/Resolving]
  - Vision blurred [Recovered/Resolved]
  - Dysuria [Unknown]
  - Fatigue [Not Recovered/Not Resolved]
  - Nasopharyngitis [Recovering/Resolving]
  - Nail bed bleeding [Unknown]
  - Haemorrhoids [Not Recovered/Not Resolved]
  - Urinary incontinence [Not Recovered/Not Resolved]
  - Vaginal infection [Recovered/Resolved]
  - Pyrexia [Recovered/Resolved]
  - Ocular discomfort [Recovered/Resolved]
  - Infection [Recovering/Resolving]
  - Chromaturia [Not Recovered/Not Resolved]
  - Uterine cancer [Not Recovered/Not Resolved]

NARRATIVE: CASE EVENT DATE: 2015
